FAERS Safety Report 8941862 (Version 1)
Quarter: 2012Q4

REPORT INFORMATION
  Report Type: 
  Country: US (occurrence: US)
  Receive Date: 20121203
  Receipt Date: 20121203
  Transmission Date: 20130627
  Serious: Yes (Congenital Anomaly, Other)
  Sender: FDA-Public Use
  Company Number: US-PFIZER INC-2012299248

PATIENT
  Age: 2 Day
  Sex: Male
  Weight: 2.75 kg

DRUGS (2)
  1. ZOLOFT [Suspect]
     Dosage: 50 mg, 1x/day
     Route: 064
     Dates: start: 20070430
  2. PRENATAL VITAMINS [Concomitant]
     Dosage: UNK
     Route: 064

REACTIONS (4)
  - Maternal exposure timing unspecified [Unknown]
  - Congenital heart valve disorder [Unknown]
  - Pulmonary artery stenosis congenital [Unknown]
  - Premature baby [Unknown]
